FAERS Safety Report 16928462 (Version 1)
Quarter: 2019Q4

REPORT INFORMATION
  Report Type: Spontaneous
  Country: US (occurrence: US)
  Receive Date: 20191017
  Receipt Date: 20191017
  Transmission Date: 20200122
  Serious: No
  Sender: FDA-Public Use
  Company Number: US-TEVA-2019-US-1123983

PATIENT
  Sex: Female

DRUGS (1)
  1. CLONAZEPAM TABLETS ACTAVIS [Suspect]
     Active Substance: CLONAZEPAM
     Route: 065

REACTIONS (3)
  - Anxiety [Unknown]
  - Malaise [Unknown]
  - Product substitution issue [Unknown]
